APPROVED DRUG PRODUCT: ATROPINE SULFATE
Active Ingredient: ATROPINE SULFATE
Strength: 0.5MG/5ML (0.1MG/ML)
Dosage Form/Route: SOLUTION;INTRAVENOUS
Application: A215342 | Product #001 | TE Code: AP
Applicant: AMNEAL EU LTD
Approved: Jan 26, 2022 | RLD: No | RS: No | Type: RX